FAERS Safety Report 23960000 (Version 7)
Quarter: 2025Q2

REPORT INFORMATION
  Report Type: Spontaneous
  Country: US (occurrence: US)
  Receive Date: 20240611
  Receipt Date: 20250613
  Transmission Date: 20250717
  Serious: Yes (Other)
  Sender: SANOFI AVENTIS
  Company Number: US-SANOFI-02079064

PATIENT
  Age: 44 Year
  Sex: Male
  Weight: 54.422 kg

DRUGS (7)
  1. ALTUVIIIO [Suspect]
     Active Substance: EFANESOCTOCOG ALFA
     Indication: Factor VIII deficiency
     Route: 042
  2. ALTUVIIIO [Suspect]
     Active Substance: EFANESOCTOCOG ALFA
     Indication: Pain
     Route: 042
  3. ALTUVIIIO [Suspect]
     Active Substance: EFANESOCTOCOG ALFA
     Route: 042
  4. ALTUVIIIO [Suspect]
     Active Substance: EFANESOCTOCOG ALFA
     Dosage: UNK UNK, HS
     Route: 042
  5. TYLENOL EXTRA STRENGTH [Concomitant]
     Active Substance: ACETAMINOPHEN
     Route: 065
  6. OMEPRAZOLE [Concomitant]
     Active Substance: OMEPRAZOLE
     Route: 065
  7. HEMLIBRA [Concomitant]
     Active Substance: EMICIZUMAB-KXWH
     Route: 065

REACTIONS (6)
  - Haemarthrosis [Unknown]
  - Limb injury [Unknown]
  - Haemorrhage [Recovered/Resolved]
  - Haemorrhage [Unknown]
  - Haemorrhage [Not Recovered/Not Resolved]
  - Product use in unapproved indication [Unknown]
